FAERS Safety Report 21795416 (Version 2)
Quarter: 2023Q1

REPORT INFORMATION
  Report Type: Spontaneous
  Country: FR (occurrence: FR)
  Receive Date: 20221229
  Receipt Date: 20230111
  Transmission Date: 20230417
  Serious: Yes (Other)
  Sender: FDA-Public Use
  Company Number: FR-TEVA-2022-FR-2840202

PATIENT

DRUGS (2)
  1. METHOTREXATE [Suspect]
     Active Substance: METHOTREXATE
     Indication: Product used for unknown indication
     Dosage: THE SUSPECT MEDICATION WAS TAKEN BY THE FATHER
     Route: 064
  2. SULFASALAZINE [Suspect]
     Active Substance: SULFASALAZINE
     Indication: Product used for unknown indication
     Dosage: THE SUSPECT MEDICATION WAS TAKEN BY THE FATHER
     Route: 064

REACTIONS (2)
  - Turner^s syndrome [Unknown]
  - Paternal exposure timing unspecified [Unknown]
